FAERS Safety Report 6953578-8 (Version None)
Quarter: 2010Q3

REPORT INFORMATION
  Report Type: 
  Country: None (occurrence: None)
  Receive Date: 20100829
  Receipt Date: 20100609
  Transmission Date: 20110219
  Serious: No
  Sender: FDA-Public Use
  Company Number: US-ABBOTT-10P-163-0651297-00

PATIENT
  Sex: Female
  Weight: 65.83 kg

DRUGS (4)
  1. NIASPAN [Suspect]
     Indication: CAROTID ARTERIOSCLEROSIS
     Dosage: EVERY NIGHT
     Dates: start: 20100529
  2. ASPIRIN [Concomitant]
     Indication: PRODUCT USED FOR UNKNOWN INDICATION
     Dosage: 1/2 HR BEFORE NIASPAN COATED
  3. ZOLOFT [Concomitant]
     Indication: PREMENSTRUAL SYNDROME
  4. UNKNOWN DECONGESTANT [Concomitant]
     Indication: HYPERSENSITIVITY

REACTIONS (1)
  - EPISTAXIS [None]
